FAERS Safety Report 8459666-1 (Version None)
Quarter: 2012Q2

REPORT INFORMATION
  Report Type: 
  Country: None (occurrence: None)
  Receive Date: 20120622
  Receipt Date: 20120615
  Transmission Date: 20120825
  Serious: Yes (Death, Hospitalization)
  Sender: FDA-Public Use
  Company Number: US-JNJFOC-20110504719

PATIENT
  Age: 50 Year
  Sex: Female
  Weight: 46.71 kg

DRUGS (39)
  1. RITUXIMAB [Suspect]
     Indication: RHEUMATOID ARTHRITIS
     Route: 042
     Dates: start: 20061101, end: 20061102
  2. PREDNISONE TAB [Suspect]
     Route: 048
     Dates: start: 20030701
  3. NEXIUM [Concomitant]
     Indication: PRODUCT USED FOR UNKNOWN INDICATION
  4. ESTROGEN [Concomitant]
     Indication: PRODUCT USED FOR UNKNOWN INDICATION
     Dates: start: 19890101
  5. HYDROXYCHLOROQUINE SULFATE [Concomitant]
  6. ACYCLOVIR [Concomitant]
     Indication: PRODUCT USED FOR UNKNOWN INDICATION
  7. DOXYCYCLINE [Concomitant]
     Indication: PRODUCT USED FOR UNKNOWN INDICATION
     Dates: start: 20050322
  8. FOLIC ACID [Concomitant]
     Indication: RHEUMATOID ARTHRITIS
  9. RANITIDINE [Concomitant]
     Indication: PRODUCT USED FOR UNKNOWN INDICATION
  10. CALCIUM W/VITAMIN D [Concomitant]
     Indication: PRODUCT USED FOR UNKNOWN INDICATION
     Dates: start: 19990101
  11. RITUXIMAB [Suspect]
     Route: 042
     Dates: start: 20041201
  12. CARBOPLATIN [Suspect]
     Indication: TONSIL CANCER
     Dates: start: 20070807, end: 20070921
  13. METHYLPREDNISOLONE [Suspect]
     Route: 042
     Dates: start: 20040316, end: 20061111
  14. PREDNISONE TAB [Suspect]
     Indication: RHEUMATOID ARTHRITIS
     Dosage: DOSE UNKNOWN, DAYS 2-14
     Route: 048
  15. PREDNISONE TAB [Suspect]
     Route: 048
     Dates: start: 20030701
  16. LOVENOX [Concomitant]
     Indication: PRODUCT USED FOR UNKNOWN INDICATION
  17. LODINE [Concomitant]
     Indication: PRODUCT USED FOR UNKNOWN INDICATION
  18. DIFLUCAN [Concomitant]
     Indication: PRODUCT USED FOR UNKNOWN INDICATION
     Dates: start: 20070201
  19. RITUXIMAB [Suspect]
     Route: 042
     Dates: start: 20030701
  20. ERBITUX [Suspect]
     Indication: TONSIL CANCER
     Dates: start: 20070807
  21. LOTRISONE [Concomitant]
     Indication: PRODUCT USED FOR UNKNOWN INDICATION
  22. LEVOTHYROXINE [Concomitant]
     Indication: PRODUCT USED FOR UNKNOWN INDICATION
     Dates: start: 19950101
  23. VIGAMOX [Concomitant]
     Indication: PRODUCT USED FOR UNKNOWN INDICATION
     Dates: start: 20060215
  24. OXYCONTIN [Concomitant]
     Indication: PRODUCT USED FOR UNKNOWN INDICATION
     Dates: start: 20070901
  25. METHYLPREDNISOLONE [Suspect]
     Indication: PREMEDICATION
     Route: 042
     Dates: start: 20030701
  26. CLINDAMYCIN [Concomitant]
     Indication: PRODUCT USED FOR UNKNOWN INDICATION
  27. DECADRON [Concomitant]
     Indication: RHEUMATOID ARTHRITIS
     Dates: start: 20070801
  28. CYMBALTA [Concomitant]
     Indication: PRODUCT USED FOR UNKNOWN INDICATION
  29. METHOTREXATE [Concomitant]
     Indication: RHEUMATOID ARTHRITIS
     Dates: start: 20050221
  30. REGLAN [Concomitant]
     Indication: PRODUCT USED FOR UNKNOWN INDICATION
  31. REMICADE [Suspect]
     Indication: PRODUCT USED FOR UNKNOWN INDICATION
     Route: 042
     Dates: start: 20020301
  32. METHYLPREDNISOLONE [Suspect]
     Route: 042
     Dates: start: 20030701
  33. PREDNISONE TAB [Suspect]
     Indication: PREMEDICATION
     Dosage: DOSE UNKNOWN, DAYS 2-14
     Route: 048
  34. DARVOCET [Concomitant]
     Indication: RHEUMATOID ARTHRITIS
  35. INVANZ [Concomitant]
     Indication: PRODUCT USED FOR UNKNOWN INDICATION
  36. FLUCONAZOLE [Concomitant]
     Indication: PRODUCT USED FOR UNKNOWN INDICATION
  37. PROVIGIL [Concomitant]
     Indication: PRODUCT USED FOR UNKNOWN INDICATION
  38. RITUXIMAB [Suspect]
     Route: 042
     Dates: start: 20040301
  39. METHYLPREDNISOLONE [Suspect]
     Indication: RHEUMATOID ARTHRITIS
     Route: 042
     Dates: start: 20040316, end: 20061111

REACTIONS (4)
  - LYMPHOPENIA [None]
  - DEATH [None]
  - PROGRESSIVE MULTIFOCAL LEUKOENCEPHALOPATHY [None]
  - OROPHARYNGEAL CANCER STAGE UNSPECIFIED [None]
